FAERS Safety Report 18244653 (Version 1)
Quarter: 2020Q3

REPORT INFORMATION
  Report Type: Spontaneous
  Country: DE (occurrence: DE)
  Receive Date: 20200908
  Receipt Date: 20200908
  Transmission Date: 20201103
  Serious: Yes (Other)
  Sender: FDA-Public Use
  Company Number: DE-JNJFOC-20200846214

PATIENT
  Sex: Female

DRUGS (1)
  1. XARELTO [Suspect]
     Active Substance: RIVAROXABAN
     Indication: TRANSCATHETER AORTIC VALVE IMPLANTATION
     Dosage: 15 MG
     Route: 048

REACTIONS (3)
  - Limb injury [Unknown]
  - Product use in unapproved indication [Unknown]
  - Off label use [Unknown]
